FAERS Safety Report 4782513-6 (Version None)
Quarter: 2005Q3

REPORT INFORMATION
  Report Type: 
  Country: None (occurrence: None)
  Receive Date: 20050929
  Receipt Date: 20050127
  Transmission Date: 20060218
  Serious: No
  Sender: FDA-Public Use
  Company Number: 395889

PATIENT
  Sex: Female

DRUGS (4)
  1. COREG [Suspect]
     Indication: HYPERTENSION
     Dosage: 3.125MG PER DAY
     Route: 048
     Dates: start: 20050120
  2. LIBRAX [Concomitant]
  3. WATER PILL [Concomitant]
  4. XANAX [Concomitant]

REACTIONS (1)
  - ANXIETY [None]
